FAERS Safety Report 5511583-2 (Version None)
Quarter: 2007Q4

REPORT INFORMATION
  Report Type: 
  Country: None (occurrence: None)
  Receive Date: 20071109
  Receipt Date: 20071101
  Transmission Date: 20080405
  Serious: Yes (Life-Threatening, Other)
  Sender: FDA-Public Use
  Company Number: JP-SANOFI-SYNTHELABO-A01200708968

PATIENT
  Sex: Male
  Weight: 57 kg

DRUGS (3)
  1. FLUOROURACIL [Suspect]
     Dosage: 600 MG IV BOLUS FOLLOWED BY 3750MG CONTINUOUS INFUSION ON D1+2
     Route: 042
     Dates: start: 20070202, end: 20070202
  2. ELPLAT [Suspect]
     Indication: COLON CANCER
     Route: 042
     Dates: start: 20070202, end: 20070202
  3. ISOVORIN [Suspect]
     Route: 042
     Dates: start: 20060927, end: 20060928

REACTIONS (3)
  - INTERSTITIAL LUNG DISEASE [None]
  - MYOCARDIAL INFARCTION [None]
  - NEUTROPENIA [None]
